FAERS Safety Report 9189681 (Version 2)
Quarter: 2013Q1

REPORT INFORMATION
  Report Type: Spontaneous
  Country: US (occurrence: None)
  Receive Date: 20130322
  Receipt Date: 20130329
  Transmission Date: 20140127
  Serious: Yes (Hospitalization)
  Sender: FDA-Public Use
  Company Number: JPI-P-030529

PATIENT
  Age: 54 Year
  Sex: Female

DRUGS (4)
  1. XYREM [Suspect]
     Indication: FIBROMYALGIA
     Dosage: (UNKNOWN) ORAL
     Route: 048
     Dates: start: 20111103
  2. PREGABALIN [Concomitant]
  3. DESVENLAFAXINE [Concomitant]
  4. CLORAZEPATE DIPOTASSIUM [Concomitant]

REACTIONS (7)
  - Respiratory depression [None]
  - Gastroenteritis viral [None]
  - Bronchitis [None]
  - Pyrexia [None]
  - Dehydration [None]
  - Dyspnoea [None]
  - Escherichia infection [None]
